FAERS Safety Report 7250737-4 (Version None)
Quarter: 2011Q1

REPORT INFORMATION
  Report Type: 
  Country: None (occurrence: None)
  Receive Date: 20110128
  Receipt Date: 20110125
  Transmission Date: 20110831
  Serious: Yes (Life-Threatening)
  Sender: FDA-Public Use
  Company Number: CA-B.I. PHARMACEUTICALS,INC./RIDGEFIELD-2010-BP-02669BP

PATIENT
  Sex: Male
  Weight: 70 kg

DRUGS (8)
  1. DABIGATRAN [Suspect]
     Indication: DEEP VEIN THROMBOSIS
  2. PERCOCET [Concomitant]
     Indication: DEEP VEIN THROMBOSIS
  3. FRAGMIN [Concomitant]
     Indication: PULMONARY EMBOLISM
     Route: 058
     Dates: start: 20100205, end: 20100220
  4. FRAGMIN [Concomitant]
     Indication: DEEP VEIN THROMBOSIS
  5. IBUPROFEN [Concomitant]
     Indication: HERNIA PAIN
     Dosage: 400 MG
     Route: 048
     Dates: start: 20060101, end: 20100204
  6. PANTOLOC [Concomitant]
     Indication: ABDOMINAL DISCOMFORT
     Route: 048
     Dates: start: 20100205
  7. PERCOCET [Concomitant]
     Indication: PAIN IN EXTREMITY
     Route: 048
     Dates: start: 20100205, end: 20100205
  8. DABIGATRAN [Suspect]
     Indication: PULMONARY EMBOLISM
     Dosage: 300 MG
     Route: 048
     Dates: start: 20100221, end: 20100304

REACTIONS (1)
  - PULMONARY EMBOLISM [None]
